FAERS Safety Report 10554046 (Version 1)
Quarter: 2014Q4

REPORT INFORMATION
  Report Type: Spontaneous
  Country: US (occurrence: US)
  Receive Date: 20141030
  Receipt Date: 20141030
  Transmission Date: 20150529
  Serious: No
  Sender: FDA-Public Use
  Company Number: US-009507513-1410USA014888

PATIENT
  Sex: Male

DRUGS (1)
  1. NASONEX [Suspect]
     Active Substance: MOMETASONE FUROATE
     Dosage: 2 SPRAYS ONCE A DAY IN THE LEFT HAND SIDE NOSTRIL
     Route: 055
     Dates: start: 201210

REACTIONS (3)
  - Underdose [Unknown]
  - Product container issue [Unknown]
  - No adverse event [Unknown]
